FAERS Safety Report 5820419-1 (Version None)
Quarter: 2008Q3

REPORT INFORMATION
  Report Type: 
  Country: None (occurrence: None)
  Receive Date: 20080724
  Receipt Date: 20070713
  Transmission Date: 20090109
  Serious: No
  Sender: FDA-Public Use
  Company Number: A0663995A

PATIENT
  Age: 55 Year
  Sex: Male

DRUGS (6)
  1. AVANDIA [Suspect]
     Dosage: 8MG PER DAY
     Route: 048
     Dates: end: 20070713
  2. INSULIN [Suspect]
  3. METFORMIN [Concomitant]
  4. AMARYL [Concomitant]
  5. LIPITOR [Concomitant]
  6. DIOVAN [Concomitant]

REACTIONS (1)
  - WEIGHT INCREASED [None]
